FAERS Safety Report 25991509 (Version 2)
Quarter: 2025Q4

REPORT INFORMATION
  Report Type: Report from Study
  Country: US (occurrence: US)
  Receive Date: 20251103
  Receipt Date: 20251110
  Transmission Date: 20260117
  Serious: No
  Sender: SANOFI AVENTIS
  Company Number: US-SA-2025SA319423

PATIENT
  Age: 58 Year
  Sex: Female

DRUGS (1)
  1. DUPILUMAB [Suspect]
     Active Substance: DUPILUMAB
     Indication: Dermatitis atopic
     Dosage: 300 MG, QOW
     Route: 058

REACTIONS (8)
  - Pain in extremity [Recovering/Resolving]
  - Groin pain [Unknown]
  - Gait disturbance [Unknown]
  - Back pain [Recovering/Resolving]
  - Headache [Unknown]
  - Injection site swelling [Unknown]
  - Injection site erythema [Unknown]
  - Injection site inflammation [Unknown]

NARRATIVE: CASE EVENT DATE: 20251001
